FAERS Safety Report 20200854 (Version 1)
Quarter: 2021Q4

REPORT INFORMATION
  Report Type: Spontaneous
  Country: CA (occurrence: CA)
  Receive Date: 20211217
  Receipt Date: 20211217
  Transmission Date: 20220303
  Serious: Yes (Hospitalization, Other)
  Sender: FDA-Public Use
  Company Number: CA-NAPPMUNDI-GBR-2021-0093351

PATIENT
  Age: 39 Year
  Sex: Female

DRUGS (2)
  1. MORPHINE SULFATE [Suspect]
     Active Substance: MORPHINE SULFATE
     Indication: Product used for unknown indication
     Dosage: UNK
     Route: 065
  2. OMALIZUMAB [Suspect]
     Active Substance: OMALIZUMAB
     Indication: Migraine
     Dosage: 300 MG, UNK
     Route: 058

REACTIONS (11)
  - Drug intolerance [Unknown]
  - Asthma [Unknown]
  - Blood pressure increased [Unknown]
  - Dyspnoea [Unknown]
  - Influenza like illness [Unknown]
  - Pneumonia [Unknown]
  - Tachycardia [Unknown]
  - Thrombosis [Unknown]
  - Anaphylactic reaction [Unknown]
  - Hypersensitivity [Unknown]
  - Malaise [Unknown]
